FAERS Safety Report 5781335-7 (Version None)
Quarter: 2008Q2

REPORT INFORMATION
  Report Type: 
  Country: None (occurrence: None)
  Receive Date: 20080623
  Receipt Date: 20080616
  Transmission Date: 20081010
  Serious: Yes (Death, Other)
  Sender: FDA-Public Use
  Company Number: US-BAYER-200815436NA

PATIENT
  Age: 61 Year
  Sex: Male
  Weight: 77 kg

DRUGS (9)
  1. CAMPATH [Suspect]
     Indication: CHRONIC LYMPHOCYTIC LEUKAEMIA STAGE 4
     Dosage: TOTAL DAILY DOSE: 30 MG
     Route: 058
     Dates: start: 20070727, end: 20070817
  2. CAMPATH [Suspect]
     Dosage: TOTAL DAILY DOSE: 10 MG
     Route: 058
     Dates: start: 20070725, end: 20070725
  3. CAMPATH [Suspect]
     Dosage: TOTAL DAILY DOSE: 3 MG
     Route: 058
     Dates: start: 20070723, end: 20070723
  4. ALLOPURINOL [Concomitant]
     Indication: INFECTION PROPHYLAXIS
     Dosage: TOTAL DAILY DOSE: 300 MG
     Route: 048
  5. ACYCLOVIR SODIUM [Concomitant]
     Indication: INFECTION PROPHYLAXIS
     Dosage: TOTAL DAILY DOSE: 400 MG
     Route: 048
  6. AUGMENTIN '125' [Concomitant]
     Indication: INFECTION PROPHYLAXIS
     Dosage: TOTAL DAILY DOSE: 1500 MG
     Route: 048
  7. ATIVAN [Concomitant]
  8. COMPAZINE [Concomitant]
  9. DAPSONE [Concomitant]

REACTIONS (15)
  - ANAEMIA [None]
  - DIVERTICULUM INTESTINAL [None]
  - ENTEROBACTER SEPSIS [None]
  - FATIGUE [None]
  - HYPOGAMMAGLOBULINAEMIA [None]
  - INTESTINAL GANGRENE [None]
  - LARGE INTESTINE PERFORATION [None]
  - MALAISE [None]
  - NIGHT SWEATS [None]
  - PERFORMANCE STATUS DECREASED [None]
  - PERITONITIS [None]
  - PYREXIA [None]
  - RENAL CANCER [None]
  - SINUS DISORDER [None]
  - WEIGHT DECREASED [None]
